FAERS Safety Report 6014551-X (Version None)
Quarter: 2008Q4

REPORT INFORMATION
  Report Type: 
  Country: None (occurrence: None)
  Receive Date: 20081219
  Receipt Date: 20080815
  Transmission Date: 20090506
  Serious: No
  Sender: FDA-Public Use
  Company Number: A0742859A

PATIENT
  Sex: Male

DRUGS (2)
  1. AVODART [Suspect]
     Indication: PROSTATIC DISORDER
     Dosage: 1CAP PER DAY
     Route: 048
     Dates: start: 20070101, end: 20080101
  2. FLOMAX [Concomitant]

REACTIONS (5)
  - BLOOD URINE PRESENT [None]
  - BREAST MASS [None]
  - NIPPLE PAIN [None]
  - POLLAKIURIA [None]
  - RESIDUAL URINE [None]
